FAERS Safety Report 5907521-0 (Version None)
Quarter: 2008Q4

REPORT INFORMATION
  Report Type: 
  Country: None (occurrence: None)
  Receive Date: 20081003
  Receipt Date: 20080924
  Transmission Date: 20090506
  Serious: Yes (Hospitalization)
  Sender: FDA-Public Use
  Company Number: FR-BRISTOL-MYERS SQUIBB COMPANY-14354955

PATIENT
  Sex: Male

DRUGS (2)
  1. HOLOXAN [Suspect]
     Indication: B-CELL LYMPHOMA
     Route: 042
     Dates: start: 20080924, end: 20080924
  2. UROMITEXAN [Concomitant]

REACTIONS (4)
  - INCORRECT DRUG ADMINISTRATION RATE [None]
  - MYOCLONUS [None]
  - SPEECH DISORDER [None]
  - TACHYCARDIA [None]
